FAERS Safety Report 7328695-3 (Version None)
Quarter: 2011Q1

REPORT INFORMATION
  Report Type: 
  Country: None (occurrence: None)
  Receive Date: 20110303
  Receipt Date: 20110224
  Transmission Date: 20110831
  Serious: Yes (Hospitalization)
  Sender: FDA-Public Use
  Company Number: TR-ROCHE-740254

PATIENT
  Age: 71 Year
  Sex: Male

DRUGS (3)
  1. CAPECITABINE [Suspect]
     Dosage: DISCONTINUED AFTER 8TH CYCLE
     Route: 048
  2. CAPECITABINE [Suspect]
     Dosage: FOR 14 DYS EVERY 21 DAYS:
     Route: 048
     Dates: start: 20060901
  3. OXALIPLATIN [Suspect]
     Dosage: DISCONTINUED AFTER 4 CYCLES
     Route: 065
     Dates: start: 20060901

REACTIONS (2)
  - PALMAR-PLANTAR ERYTHRODYSAESTHESIA SYNDROME [None]
  - HYPERLIPIDAEMIA [None]
